FAERS Safety Report 4447243-9 (Version None)
Quarter: 2004Q3

REPORT INFORMATION
  Report Type: 
  Country: None (occurrence: None)
  Receive Date: 20040908
  Receipt Date: 20040908
  Transmission Date: 20050211
  Serious: Yes (Hospitalization)
  Sender: FDA-Public Use
  Company Number: None

PATIENT
  Age: 71 Year
  Sex: Male

DRUGS (11)
  1. ATENOLOL [Suspect]
     Indication: HYPERTENSION
     Dosage: 25 MG QD
     Dates: start: 20031001
  2. DILTIAZEM [Suspect]
     Indication: HYPERTENSION
     Dosage: 360 MG QD
     Dates: start: 20010801
  3. FOSAMAX [Concomitant]
  4. GLIPIZIDE [Concomitant]
  5. FESO4 [Concomitant]
  6. WARFARIN SODIUM [Concomitant]
  7. OSCAL [Concomitant]
  8. GUAIFENESIN [Concomitant]
  9. ALLEGRA [Concomitant]
  10. EPOGEN [Concomitant]
  11. ZOCOR [Concomitant]

REACTIONS (1)
  - BRADYCARDIA [None]
